FAERS Safety Report 10684823 (Version 1)
Quarter: 2014Q4

REPORT INFORMATION
  Report Type: Spontaneous
  Country: US (occurrence: US)
  Receive Date: 20141231
  Receipt Date: 20141231
  Transmission Date: 20150529
  Serious: No
  Sender: FDA-Public Use
  Company Number: US-009507513-1412USA010868

PATIENT
  Age: 18 Year
  Sex: Female

DRUGS (1)
  1. NEXPLANON [Suspect]
     Active Substance: ETONOGESTREL
     Indication: CONTRACEPTION
     Dosage: 1 ROD/ 3 YEARS; INSERTED IN LEFT ARM
     Route: 059
     Dates: start: 20140912

REACTIONS (2)
  - Device dislocation [Not Recovered/Not Resolved]
  - Implant site pruritus [Unknown]

NARRATIVE: CASE EVENT DATE: 20141222
